FAERS Safety Report 12290874 (Version 5)
Quarter: 2018Q3

REPORT INFORMATION
  Report Type: Report from Study
  Country: US (occurrence: US)
  Receive Date: 20160421
  Receipt Date: 20180926
  Transmission Date: 20181010
  Serious: Yes (Hospitalization, Other)
  Sender: FDA-Public Use
  Company Number: PHEH2016US009699

PATIENT
  Sex: Female

DRUGS (12)
  1. VITAMIN D [Concomitant]
     Active Substance: CHOLECALCIFEROL
     Indication: PRODUCT USED FOR UNKNOWN INDICATION
     Dosage: 50000 MG, QW
  2. SPIRONOLACTONE. [Concomitant]
     Active Substance: SPIRONOLACTONE
     Indication: PRODUCT USED FOR UNKNOWN INDICATION
     Route: 065
  3. BABY ASPIRIN [Concomitant]
     Active Substance: ASPIRIN
     Indication: PRODUCT USED FOR UNKNOWN INDICATION
     Route: 065
  4. PLAVIX [Concomitant]
     Active Substance: CLOPIDOGREL BISULFATE
     Indication: PRODUCT USED FOR UNKNOWN INDICATION
     Route: 065
  5. MULTI VITAMIN [Concomitant]
     Active Substance: VITAMINS
     Indication: PRODUCT USED FOR UNKNOWN INDICATION
     Dosage: UNK UNK, QD
     Route: 065
  6. METOPROL XL [Concomitant]
     Indication: CORONARY ARTERY DISEASE
     Dosage: 50 MG, UNK
     Route: 048
     Dates: start: 20170720
  7. ECOTRIN [Concomitant]
     Active Substance: ASPIRIN
     Indication: CORONARY ARTERY DISEASE
     Dosage: 20 MG, UNK
     Route: 048
     Dates: start: 20171226
  8. ENTRESTO [Suspect]
     Active Substance: SACUBITRIL\VALSARTAN
     Indication: CARDIAC FAILURE
     Dosage: 50 MG, QD
     Route: 048
     Dates: start: 201601
  9. LASIX [Concomitant]
     Active Substance: FUROSEMIDE
     Indication: PRODUCT USED FOR UNKNOWN INDICATION
     Route: 065
  10. ELIQUIS [Concomitant]
     Active Substance: APIXABAN
     Indication: PRODUCT USED FOR UNKNOWN INDICATION
     Route: 065
  11. CRESTOR [Concomitant]
     Active Substance: ROSUVASTATIN CALCIUM
     Indication: HYPERLIPIDAEMIA
     Dosage: 40 MG, UNK
     Route: 048
     Dates: start: 20160301
  12. ALDACTONE [Concomitant]
     Active Substance: SPIRONOLACTONE
     Indication: CORONARY ARTERY DISEASE
     Dosage: 25 MG, UNK
     Route: 048
     Dates: start: 20170330

REACTIONS (14)
  - Gait disturbance [Unknown]
  - Cardiac failure [Unknown]
  - Muscle strain [Recovered/Resolved]
  - Peripheral swelling [Unknown]
  - Cerebrovascular accident [Unknown]
  - Muscular weakness [Unknown]
  - Underdose [Unknown]
  - Thrombosis [Unknown]
  - Dysphonia [Unknown]
  - Neck pain [Unknown]
  - Bronchitis [Recovered/Resolved]
  - Inappropriate schedule of drug administration [Unknown]
  - Myocardial infarction [Unknown]
  - Headache [Unknown]
